FAERS Safety Report 4323649-3 (Version None)
Quarter: 2004Q1

REPORT INFORMATION
  Report Type: 
  Country: None (occurrence: None)
  Receive Date: 20040323
  Receipt Date: 20040318
  Transmission Date: 20041129
  Serious: Yes (Hospitalization)
  Sender: FDA-Public Use
  Company Number: A-CH2004-05051

PATIENT
  Age: 4 Year
  Sex: Female
  Weight: 14.4 kg

DRUGS (4)
  1. TRACLEER [Suspect]
     Indication: PULMONARY HYPERTENSION
     Dosage: SEE IMAGE
     Route: 048
     Dates: start: 20040109, end: 20040204
  2. TRACLEER [Suspect]
     Indication: PULMONARY HYPERTENSION
     Dosage: SEE IMAGE
     Route: 048
     Dates: start: 20040205
  3. FLUINDIONE (FLUINDIONE) [Concomitant]
  4. FLOLAN [Concomitant]

REACTIONS (10)
  - CONDITION AGGRAVATED [None]
  - GASTROENTERITIS [None]
  - HYPERTHERMIA [None]
  - LYMPHADENITIS [None]
  - PHARYNGEAL ERYTHEMA [None]
  - PLATELET COUNT DECREASED [None]
  - PULMONARY HYPERTENSION [None]
  - PYREXIA [None]
  - VIRAL PHARYNGITIS [None]
  - WEIGHT INCREASED [None]
